FAERS Safety Report 5857719-5 (Version None)
Quarter: 2008Q3

REPORT INFORMATION
  Report Type: 
  Country: None (occurrence: None)
  Receive Date: 20080826
  Receipt Date: 20080818
  Transmission Date: 20090109
  Serious: Yes (Death, Other)
  Sender: FDA-Public Use
  Company Number: US-TEVA-168683USA

PATIENT
  Sex: Male

DRUGS (15)
  1. CLOZAPINE [Suspect]
     Indication: SCHIZOPHRENIA
     Route: 048
     Dates: start: 19950101, end: 20080312
  2. VALPROATE SODIUM [Concomitant]
     Dosage: 750 MG AM, 1250 MG HS
  3. DIAZEPAM [Concomitant]
  4. FLUVOXAMINE MALEATE [Concomitant]
     Dosage: QHS
  5. LOXAPINE [Concomitant]
     Dosage: QHS
  6. BISACODYL [Concomitant]
  7. DOCUSATE SODIUM [Concomitant]
  8. FLUTICASONE PROPIONATE [Concomitant]
  9. SERETIDE [Concomitant]
  10. SALBUTAMOL [Concomitant]
     Dosage: PRN
  11. LORATADINE [Concomitant]
  12. PLANTAGO OVATA [Concomitant]
  13. RANITIDINE [Concomitant]
  14. LOPERAMIDE HCL [Concomitant]
     Dosage: PRN
  15. SENNA ALEXANDRINA [Concomitant]
     Dosage: PRN

REACTIONS (2)
  - CONGESTIVE CARDIOMYOPATHY [None]
  - PULMONARY OEDEMA [None]
